FAERS Safety Report 9444426 (Version 1)
Quarter: 2013Q3

REPORT INFORMATION
  Report Type: Spontaneous
  Country: US (occurrence: None)
  Receive Date: 20130806
  Receipt Date: 20130806
  Transmission Date: 20140515
  Serious: Yes (Hospitalization)
  Sender: FDA-Public Use
  Company Number: None

PATIENT
  Age: 1 Year
  Sex: Male
  Weight: 9.4 kg

DRUGS (6)
  1. DAUNORUBICIN [Suspect]
     Dates: end: 20130625
  2. DEXAMETHASONE [Suspect]
     Dates: end: 20130716
  3. METHOTREXATE [Suspect]
     Dates: end: 20130709
  4. ONCASPAR [Suspect]
     Dates: end: 20130628
  5. VINCRISTINE SULFATE [Suspect]
     Dates: end: 20130716
  6. CYTARABINE [Suspect]
     Dates: end: 20130625

REACTIONS (10)
  - Vomiting [None]
  - Dehydration [None]
  - Abdominal pain [None]
  - Decreased appetite [None]
  - Hypophagia [None]
  - Clostridium difficile colitis [None]
  - Large intestine perforation [None]
  - Haemorrhage [None]
  - Haematocrit decreased [None]
  - Haemoglobin decreased [None]
